FAERS Safety Report 17261931 (Version 2)
Quarter: 2023Q2

REPORT INFORMATION
  Report Type: Spontaneous
  Country: US (occurrence: US)
  Receive Date: 20200113
  Receipt Date: 20230509
  Transmission Date: 20230722
  Serious: Yes (Death, Life-Threatening, Hospitalization, Other)
  Sender: FDA-Public Use
  Company Number: US-GLENMARK PHARMACEUTICALS-2019GMK045263

PATIENT
  Age: 16 Year
  Sex: Female

DRUGS (17)
  1. TACROLIMUS [Suspect]
     Active Substance: TACROLIMUS
     Indication: Acute graft versus host disease in skin
     Dosage: UNK
     Route: 065
     Dates: start: 2016
  2. HYDROCORTISONE VALERATE [Suspect]
     Active Substance: HYDROCORTISONE VALERATE
     Indication: Acute graft versus host disease in skin
     Dosage: UNK
     Route: 065
  3. HYDROCORTISONE VALERATE [Suspect]
     Active Substance: HYDROCORTISONE VALERATE
     Indication: Haemophagocytic lymphohistiocytosis
     Dosage: UNK; INTRATHECAL MTX/HYDROCORTISONE
     Route: 039
  4. SIROLIMUS [Suspect]
     Active Substance: SIROLIMUS
     Indication: Acute graft versus host disease in skin
     Dosage: UNK
     Route: 065
     Dates: start: 2016
  5. METHOTREXATE [Suspect]
     Active Substance: METHOTREXATE
     Indication: Acute graft versus host disease in skin
     Dosage: UNK
     Route: 037
  6. METHOTREXATE [Suspect]
     Active Substance: METHOTREXATE
     Indication: Haemophagocytic lymphohistiocytosis
  7. DEXAMETHASONE [Suspect]
     Active Substance: DEXAMETHASONE
     Indication: Acute graft versus host disease in skin
     Dosage: UNK
     Route: 065
  8. DEXAMETHASONE [Suspect]
     Active Substance: DEXAMETHASONE
     Indication: Haemophagocytic lymphohistiocytosis
  9. RUXOLITINIB [Suspect]
     Active Substance: RUXOLITINIB
     Indication: Acute graft versus host disease in skin
     Dosage: UNK
     Route: 065
     Dates: start: 201611
  10. RITUXIMAB [Suspect]
     Active Substance: RITUXIMAB
     Indication: Acute graft versus host disease in skin
     Dosage: 1 DF IN TOTAL
     Route: 065
     Dates: start: 20160525, end: 20160525
  11. RITUXIMAB [Suspect]
     Active Substance: RITUXIMAB
     Indication: Epstein-Barr virus infection reactivation
  12. MYCOPHENOLATE MOFETIL [Suspect]
     Active Substance: MYCOPHENOLATE MOFETIL
     Indication: Haemophagocytic lymphohistiocytosis
     Dosage: UNK
     Route: 065
     Dates: start: 2016
  13. MYCOPHENOLATE MOFETIL [Suspect]
     Active Substance: MYCOPHENOLATE MOFETIL
     Indication: Acute graft versus host disease in skin
  14. PREDNISONE [Suspect]
     Active Substance: PREDNISONE
     Indication: Acute graft versus host disease in skin
     Dosage: UNK; LOW-DOSE
     Route: 048
     Dates: start: 2016
  15. METHYLPREDNISOLONE [Suspect]
     Active Substance: METHYLPREDNISOLONE
     Indication: Acute graft versus host disease in skin
     Dosage: UNK
     Route: 065
  16. METHYLPREDNISOLONE [Suspect]
     Active Substance: METHYLPREDNISOLONE
     Indication: Haemophagocytic lymphohistiocytosis
  17. ETOPOSIDE [Concomitant]
     Active Substance: ETOPOSIDE
     Indication: Haemophagocytic lymphohistiocytosis
     Dosage: UNK
     Route: 065

REACTIONS (3)
  - Encephalopathy [Fatal]
  - JC virus infection [Fatal]
  - Upper respiratory tract infection [Unknown]
